FAERS Safety Report 14125470 (Version 1)
Quarter: 2017Q4

REPORT INFORMATION
  Report Type: Spontaneous
  Country: ES (occurrence: ES)
  Receive Date: 20171025
  Receipt Date: 20171025
  Transmission Date: 20180321
  Serious: Yes (Hospitalization)
  Sender: FDA-Public Use
  Company Number: ES-TEVA-816964ISR

PATIENT
  Age: 39 Year
  Sex: Male

DRUGS (1)
  1. IMATINIB TEVA 400 MG COMPRIMIDOS RECUBIERTTOS CON PELICULA EFG [Suspect]
     Active Substance: IMATINIB MESYLATE
     Indication: CHRONIC MYELOID LEUKAEMIA
     Dosage: 400 MILLIGRAM DAILY; 400 MG
     Route: 048
     Dates: start: 20170620, end: 20170919

REACTIONS (4)
  - Nausea [Recovering/Resolving]
  - Melaena [Unknown]
  - Mallory-Weiss syndrome [Recovering/Resolving]
  - Vomiting [Unknown]

NARRATIVE: CASE EVENT DATE: 2017
